FAERS Safety Report 6933222-6 (Version None)
Quarter: 2010Q3

REPORT INFORMATION
  Report Type: 
  Country: None (occurrence: None)
  Receive Date: 20100820
  Receipt Date: 20100806
  Transmission Date: 20110219
  Serious: Yes (Other)
  Sender: FDA-Public Use
  Company Number: GB-RANBAXY-2010RR-37350

PATIENT
  Sex: Male
  Weight: 90 kg

DRUGS (3)
  1. CODEINE SULFATE [Suspect]
     Indication: ANALGESIC THERAPY
     Dosage: 60 MG, UNK
     Route: 048
     Dates: start: 20100710, end: 20100710
  2. CHLOROQUINE PHOSPHATE [Concomitant]
     Indication: MALARIA PROPHYLAXIS
     Dosage: 200 MG, UNK
     Route: 048
     Dates: start: 20100607
  3. ACETAMINOPHEN [Concomitant]
     Indication: PAIN
     Dosage: 1 G, PRN
     Route: 048

REACTIONS (3)
  - ABDOMINAL PAIN [None]
  - ABDOMINAL PAIN UPPER [None]
  - BILIARY COLIC [None]
